FAERS Safety Report 9833559 (Version 2)
Quarter: 2014Q1

REPORT INFORMATION
  Report Type: Spontaneous
  Country: US (occurrence: US)
  Receive Date: 20140122
  Receipt Date: 20140325
  Transmission Date: 20141002
  Serious: Yes (Other)
  Sender: FDA-Public Use
  Company Number: US-BIOGENIDEC-2014BI004116

PATIENT
  Sex: Female

DRUGS (3)
  1. TYSABRI [Suspect]
     Indication: RELAPSING-REMITTING MULTIPLE SCLEROSIS
     Route: 042
     Dates: start: 20101025, end: 20130405
  2. METHYLPREDNISOLONE [Concomitant]
     Indication: ARTHROPATHY
  3. GLATIRAMER [Concomitant]
     Indication: MUSCULAR WEAKNESS
     Dates: start: 20050711

REACTIONS (1)
  - Breast cancer [Not Recovered/Not Resolved]
